FAERS Safety Report 6974616-2 (Version None)
Quarter: 2010Q3

REPORT INFORMATION
  Report Type: 
  Country: None (occurrence: None)
  Receive Date: 20100909
  Receipt Date: 20081203
  Transmission Date: 20110219
  Serious: No
  Sender: FDA-Public Use
  Company Number: US-WYE-H07098008

PATIENT
  Age: 55 Year
  Sex: Male
  Weight: 90.8 kg

DRUGS (3)
  1. PRISTIQ [Suspect]
     Indication: ANXIETY
     Route: 048
     Dates: start: 20081111
  2. PRISTIQ [Suspect]
     Indication: DEPRESSION
  3. WELLBUTRIN [Concomitant]

REACTIONS (2)
  - ANORGASMIA [None]
  - ORGASM ABNORMAL [None]
